FAERS Safety Report 10601585 (Version 1)
Quarter: 2014Q4

REPORT INFORMATION
  Report Type: Spontaneous
  Country: US (occurrence: None)
  Receive Date: 20141121
  Receipt Date: 20141121
  Transmission Date: 20150529
  Serious: No
  Sender: FDA-Public Use
  Company Number: None

PATIENT
  Age: 79 Year
  Sex: Female
  Weight: 79.38 kg

DRUGS (38)
  1. ACIDOPHILUS [Concomitant]
     Active Substance: LACTOBACILLUS ACIDOPHILUS
  2. CA++ [Concomitant]
  3. LORATIDINE [Concomitant]
     Active Substance: LORATADINE
  4. CARAFATE [Concomitant]
     Active Substance: SUCRALFATE
  5. ASPIRIN. [Concomitant]
     Active Substance: ASPIRIN
  6. SIMETHICONE [Concomitant]
     Active Substance: DIMETHICONE\SILICON DIOXIDE\SIMETHICONE
  7. OXCARBAZEPINE. [Suspect]
     Active Substance: OXCARBAZEPINE
     Indication: DYSSTASIA
     Dosage: 1/2 TAB, ONCE A DAY
     Route: 048
     Dates: start: 20141001
  8. FISH OIL [Concomitant]
     Active Substance: FISH OIL
  9. BIOTIN [Concomitant]
     Active Substance: BIOTIN
  10. ATENOLOL. [Concomitant]
     Active Substance: ATENOLOL
  11. LOSARTAN [Concomitant]
     Active Substance: LOSARTAN
  12. HAWTHORNBERRY [Concomitant]
  13. SELENIUM [Concomitant]
     Active Substance: SELENIUM
  14. OXCARBAZEPINE. [Suspect]
     Active Substance: OXCARBAZEPINE
     Indication: NEURALGIA
     Dosage: 1/2 TAB, ONCE A DAY
     Route: 048
     Dates: start: 20141001
  15. ZINC [Concomitant]
     Active Substance: ZINC\ZINC CHLORIDE
  16. GARLIC OIL [Concomitant]
     Active Substance: GARLIC OIL
  17. TYLENOL [Concomitant]
     Active Substance: ACETAMINOPHEN
  18. ECHINACEA [Concomitant]
     Active Substance: ECHINACEA, UNSPECIFIED
  19. GLUCOSAMINE [Concomitant]
     Active Substance: GLUCOSAMINE
  20. NIACIN. [Concomitant]
     Active Substance: NIACIN
  21. D3 [Concomitant]
     Active Substance: 25-HYDROXYCHOLECALCIFEROL, 5-TRANS-
  22. CINNAMON. [Concomitant]
     Active Substance: CINNAMON
  23. FAMOTIDINE. [Concomitant]
     Active Substance: FAMOTIDINE
  24. MVI [Concomitant]
     Active Substance: VITAMINS
  25. FLAXSEED [Concomitant]
     Active Substance: FLAX SEED
  26. LUTEIN [Concomitant]
     Active Substance: LUTEIN
  27. DOXYCYCLINE. [Concomitant]
     Active Substance: DOXYCYCLINE
  28. PROAIR HFA [Concomitant]
     Active Substance: ALBUTEROL SULFATE
  29. LECITHIN [Concomitant]
     Active Substance: LECITHIN
  30. VITAMIN C [Concomitant]
     Active Substance: ASCORBIC ACID
  31. B2 [Concomitant]
  32. LASIX [Concomitant]
     Active Substance: FUROSEMIDE
  33. OTC EYE DROPS [Concomitant]
     Active Substance: UNSPECIFIED INGREDIENT
  34. ASTELIN [Concomitant]
     Active Substance: AZELASTINE HYDROCHLORIDE
  35. CRANBERRY. [Concomitant]
     Active Substance: CRANBERRY
  36. COQ10 [Concomitant]
     Active Substance: UBIDECARENONE
  37. BENADRYL [Concomitant]
     Active Substance: DIPHENHYDRAMINE HYDROCHLORIDE
  38. EVE PRIMROSE [Concomitant]

REACTIONS (8)
  - Therapy change [None]
  - Pain [None]
  - Paraesthesia [None]
  - Product quality issue [None]
  - Neuralgia [None]
  - Condition aggravated [None]
  - Muscle spasms [None]
  - Product substitution issue [None]

NARRATIVE: CASE EVENT DATE: 201410
